FAERS Safety Report 25489886 (Version 3)
Quarter: 2025Q3

REPORT INFORMATION
  Report Type: Spontaneous
  Country: US (occurrence: US)
  Receive Date: 20250627
  Receipt Date: 20250808
  Transmission Date: 20251020
  Serious: Yes (Other)
  Sender: ARDELYX
  Company Number: US-ARDELYX-2025ARDX004774

PATIENT
  Age: 67 Year
  Sex: Female

DRUGS (1)
  1. XPHOZAH [Suspect]
     Active Substance: TENAPANOR HYDROCHLORIDE
     Indication: Product used for unknown indication
     Route: 065
     Dates: start: 20250306

REACTIONS (4)
  - Deafness unilateral [Unknown]
  - Cholesteatoma [Unknown]
  - Cerumen impaction [Unknown]
  - Cerumen removal [Unknown]

NARRATIVE: CASE EVENT DATE: 20250306
